FAERS Safety Report 7355904-7 (Version None)
Quarter: 2011Q1

REPORT INFORMATION
  Report Type: 
  Country: None (occurrence: None)
  Receive Date: 20110316
  Receipt Date: 20110228
  Transmission Date: 20110831
  Serious: Yes (Other)
  Sender: FDA-Public Use
  Company Number: GB-RANBAXY-2009RR-29873

PATIENT
  Age: 17 Year
  Sex: Male

DRUGS (19)
  1. ARA-C [Suspect]
     Indication: BURKITT'S LYMPHOMA
     Dosage: 1000 MG/M2, UNK
     Route: 065
  2. MERCAPTOPURINE [Suspect]
     Indication: ILL-DEFINED DISORDER
     Route: 065
  3. MERCAPTOPURINE [Suspect]
     Indication: BURKITT'S LYMPHOMA
     Route: 065
  4. VINCRISTINE SULFATE [Suspect]
     Indication: BURKITT'S LYMPHOMA
     Dosage: 6 MG/M2, UNK
     Route: 065
  5. CYCLOPHOSPHAMIDE [Suspect]
     Indication: ILL-DEFINED DISORDER
     Route: 065
  6. ETOPOSIDE [Suspect]
     Indication: ILL-DEFINED DISORDER
     Route: 065
  7. ITRACONAZOLE [Suspect]
     Indication: PROPHYLAXIS
     Route: 065
  8. PREDNISOLONE [Suspect]
     Indication: BURKITT'S LYMPHOMA
     Dosage: 2 UNK, UNK
     Route: 065
  9. TACROLIMUS [Suspect]
     Indication: IMMUNOSUPPRESSION
     Route: 065
  10. THIOGUANINE [Suspect]
     Indication: BURKITT'S LYMPHOMA
     Dosage: 750 MG/M2, UNK
  11. DEXRAZOXANE [Suspect]
     Indication: ILL-DEFINED DISORDER
     Route: 065
  12. CAELYX [Suspect]
     Indication: BURKITT'S LYMPHOMA
     Dosage: 200 MG/M2, UNK
     Route: 042
  13. ACYCLOVIR [Suspect]
     Indication: PROPHYLAXIS
     Route: 065
  14. COTRIM [Suspect]
     Indication: PROPHYLAXIS
     Route: 065
  15. METHOTREXATE [Suspect]
     Indication: BURKITT'S LYMPHOMA
     Dosage: 6 DF, UNK
     Route: 037
  16. RITUXIMAB [Suspect]
     Indication: BURKITT'S LYMPHOMA
     Dosage: 375 MG/M2, UNK
     Route: 065
  17. VP-16 [Suspect]
     Indication: BURKITT'S LYMPHOMA
     Route: 065
  18. ONCOVIN [Suspect]
     Indication: BURKITT'S LYMPHOMA
     Route: 065
  19. PREDNISONE [Concomitant]
     Indication: ILL-DEFINED DISORDER
     Route: 065

REACTIONS (5)
  - NEUTROPENIA [None]
  - RENAL IMPAIRMENT [None]
  - EPSTEIN-BARR VIRAEMIA [None]
  - LYMPHOPROLIFERATIVE DISORDER [None]
  - WEIGHT DECREASED [None]
